FAERS Safety Report 20236200 (Version 2)
Quarter: 2024Q3

REPORT INFORMATION
  Report Type: Spontaneous
  Country: CA (occurrence: CA)
  Receive Date: 20211228
  Receipt Date: 20240717
  Transmission Date: 20241017
  Serious: No
  Sender: ASTELLAS
  Company Number: CA-ASTELLAS-2021US049491

PATIENT
  Sex: Male

DRUGS (1)
  1. MYRBETRIQ [Suspect]
     Active Substance: MIRABEGRON
     Indication: Product used for unknown indication
     Route: 065
     Dates: start: 202111, end: 202112

REACTIONS (2)
  - Blepharospasm [Not Recovered/Not Resolved]
  - Palpitations [Unknown]
